FAERS Safety Report 12725776 (Version 1)
Quarter: 2016Q3

REPORT INFORMATION
  Report Type: Spontaneous
  Country: JP (occurrence: JP)
  Receive Date: 20160908
  Receipt Date: 20160908
  Transmission Date: 20161109
  Serious: Yes (Hospitalization)
  Sender: FDA-Public Use
  Company Number: PHJP2016JP025552

PATIENT
  Sex: Male

DRUGS (2)
  1. DIOVAN [Suspect]
     Active Substance: VALSARTAN
     Indication: PRODUCT USED FOR UNKNOWN INDICATION
     Dosage: UNK
     Route: 048
  2. TERNELIN TAB [Suspect]
     Active Substance: TIZANIDINE HYDROCHLORIDE
     Indication: MUSCULOSKELETAL STIFFNESS
     Dosage: UNK, PRN
     Route: 048

REACTIONS (3)
  - Blood uric acid increased [Unknown]
  - Gamma-glutamyltransferase increased [Unknown]
  - Gastric ulcer haemorrhage [Unknown]

NARRATIVE: CASE EVENT DATE: 201510
